FAERS Safety Report 9192289 (Version 1)
Quarter: 2013Q1

REPORT INFORMATION
  Report Type: Spontaneous
  Country: TR (occurrence: None)
  Receive Date: 20130325
  Receipt Date: 20130325
  Transmission Date: 20140127
  Serious: Yes (Hospitalization)
  Sender: FDA-Public Use
  Company Number: IMP_06621_2013

PATIENT
  Age: 15 Year
  Sex: Female

DRUGS (1)
  1. METFORMIN (METFORMIN) [Suspect]
     Indication: PRODUCT USED FOR UNKNOWN INDICATION

REACTIONS (8)
  - Suicide attempt [None]
  - Poisoning [None]
  - Loss of consciousness [None]
  - Agitation [None]
  - Kussmaul respiration [None]
  - Continuous haemodiafiltration [None]
  - Lactic acidosis [None]
  - Hypoglycaemia [None]
